FAERS Safety Report 6842841-7 (Version None)
Quarter: 2010Q3

REPORT INFORMATION
  Report Type: 
  Country: None (occurrence: None)
  Receive Date: 20100714
  Receipt Date: 20070804
  Transmission Date: 20110219
  Serious: No
  Sender: FDA-Public Use
  Company Number: US-PFIZER INC-2007066201

PATIENT
  Sex: Male
  Weight: 94.3 kg

DRUGS (7)
  1. CHANTIX [Suspect]
     Indication: SMOKING CESSATION THERAPY
     Dates: start: 20070801
  2. NAVANE [Suspect]
     Indication: DEPRESSION
  3. CLONAZEPAM [Suspect]
  4. NORTRIPTYLINE [Suspect]
  5. ATENOLOL [Suspect]
     Indication: HYPERTENSION
  6. LISINOPRIL [Suspect]
     Indication: HYPERTENSION
  7. ZOCOR [Concomitant]
     Indication: BLOOD CHOLESTEROL INCREASED

REACTIONS (2)
  - DYSGEUSIA [None]
  - FEELING ABNORMAL [None]
